FAERS Safety Report 8557632-9 (Version None)
Quarter: 2012Q3

REPORT INFORMATION
  Report Type: 
  Country: None (occurrence: None)
  Receive Date: 20120801
  Receipt Date: 20120720
  Transmission Date: 20120928
  Serious: Yes (Life-Threatening, Hospitalization, Other)
  Sender: FDA-Public Use
  Company Number: US-ALEXION PHARMACEUTICALS INC.-A201201392

PATIENT
  Sex: Female
  Weight: 65.5 kg

DRUGS (26)
  1. SOLIRIS [Suspect]
     Dosage: 1200 MG, Q2W
     Route: 042
  2. DIPHENHYDRAMINE HCL [Concomitant]
     Dosage: 12.5 MG, QID PRN
     Route: 048
     Dates: start: 20120521
  3. ACETAMINOPHEN [Concomitant]
     Dosage: 160 MG/5ML, 480 MG Q 4 HRS PRN
     Route: 048
     Dates: start: 20120521
  4. WARFARIN SODIUM [Concomitant]
     Dosage: 5MG EXC 2.5MG Q MON/FRI
     Route: 048
  5. TRICOR [Concomitant]
     Dosage: 48 MG, TID
     Route: 048
     Dates: start: 20120614
  6. FENOFIBRATE [Concomitant]
     Dosage: 145 MG, QD
     Route: 048
     Dates: start: 20120521
  7. MIRTAZAPINE [Concomitant]
     Dosage: 30 MG, QD
     Route: 048
     Dates: start: 20120521
  8. PANTOPRAZOLE SODIUM [Concomitant]
     Dosage: 40 MG, QD
     Route: 048
     Dates: start: 20120614
  9. ZOLPIDEM TARTRATE [Concomitant]
     Dosage: 5 MG, PRN
     Route: 048
     Dates: start: 20120615
  10. DOCUSATE SODIUM [Concomitant]
     Dosage: 100 MG, BID
     Route: 048
     Dates: start: 20120521
  11. MULTI-VITAMINS [Concomitant]
     Dosage: UNK, QD
     Route: 048
  12. SOLIRIS [Suspect]
     Indication: HAEMOLYTIC URAEMIC SYNDROME
     Dosage: 900 MG, UNK
     Route: 042
     Dates: start: 20120411
  13. LISINOPRIL [Concomitant]
     Dosage: 5 MG, QD DEPENDING ON BP
     Route: 048
  14. CARVEDILOL [Concomitant]
     Dosage: 25 MG, BID
     Route: 048
     Dates: start: 20120521
  15. ENOXAPARIN SODIUM [Concomitant]
     Dosage: 60 MG/0.6 ML, BID
     Route: 058
     Dates: start: 20120629
  16. PHENERGAN HCL [Concomitant]
     Dosage: 25 MG/ML, Q 4 HRS PRN
     Route: 030
  17. ASPIRIN [Concomitant]
     Dosage: 81 MG, QD
     Route: 048
     Dates: start: 20120521
  18. HYDROXYZINE HYDROCHLORIDE [Concomitant]
     Dosage: PRN25 MG, QID
     Route: 048
     Dates: start: 20120521
  19. PHENERGAN HCL [Concomitant]
     Dosage: 25 MG, Q 6 HRS
     Route: 048
  20. DILAUDID [Concomitant]
     Dosage: 2 MG, Q 4 HRS
     Route: 048
     Dates: start: 20120521
  21. LORTAB [Concomitant]
     Dosage: 7.5-500 MG/15ML, Q 4-6 HRS PRN
     Route: 048
     Dates: start: 20120411
  22. CLONIDINE [Concomitant]
     Dosage: 0.3 MG/24HR, WEEKLY
     Route: 062
  23. CIPROFLAXACIN [Concomitant]
     Dosage: 500MG/5 ML, QD
     Route: 048
  24. LORAZEPAM [Concomitant]
     Dosage: 0.5 MG, PRN
     Route: 048
     Dates: start: 20120521
  25. ASCORBIC ACID [Concomitant]
     Dosage: 500 MG, QD
     Route: 048
  26. IRON [Concomitant]
     Dosage: 15 MG/1.5ML
     Route: 048

REACTIONS (7)
  - ANAEMIA [None]
  - HYPERKALAEMIA [None]
  - CARDIAC ARREST [None]
  - BIOPSY KIDNEY [None]
  - POST PROCEDURAL HAEMORRHAGE [None]
  - CEREBROVASCULAR ACCIDENT [None]
  - ABDOMINAL PAIN [None]
